FAERS Safety Report 4673753-5 (Version None)
Quarter: 2005Q2

REPORT INFORMATION
  Report Type: 
  Country: None (occurrence: None)
  Receive Date: 20050524
  Receipt Date: 20050516
  Transmission Date: 20051028
  Serious: Yes (Hospitalization)
  Sender: FDA-Public Use
  Company Number: GBWYE613925APR05

PATIENT
  Age: 24 Year
  Sex: Female

DRUGS (5)
  1. EFFEXOR [Suspect]
     Indication: DEPRESSION
     Dosage: 150 MG 2X PER 1 DAY ORAL
     Route: 048
     Dates: start: 20040719, end: 20050227
  2. EFFEXOR [Suspect]
     Indication: DEPRESSION
     Dosage: 150 MG 2X PER 1 DAY ORAL
     Route: 048
     Dates: start: 20050228
  3. EFFEXOR [Suspect]
     Indication: DEPRESSION
     Dosage: 75 MG 1X PER 1 DAY ORAL
     Route: 048
     Dates: end: 20050418
  4. OLANZAPINE (OLANZAPINE) [Concomitant]
  5. CARBAMAZEPINE [Concomitant]

REACTIONS (2)
  - PALPITATIONS [None]
  - SINUS TACHYCARDIA [None]
